FAERS Safety Report 23546448 (Version 1)
Quarter: 2024Q1

REPORT INFORMATION
  Report Type: Spontaneous
  Country: KR (occurrence: KR)
  Receive Date: 20240220
  Receipt Date: 20240220
  Transmission Date: 20240410
  Serious: Yes (Hospitalization, Other)
  Sender: FDA-Public Use
  Company Number: KR-SA-SAC20240216000536

PATIENT
  Age: 53 Year
  Sex: Female
  Weight: 66.1 kg

DRUGS (18)
  1. ZALTRAP [Suspect]
     Active Substance: ZIV-AFLIBERCEPT
     Indication: Colon cancer
     Dosage: DOSAGE: 4 MILLIGRAM PER KILOGRAM DOSING INTERVAL: 2 WEEK
     Dates: start: 20211221, end: 20220117
  2. ZALTRAP [Suspect]
     Active Substance: ZIV-AFLIBERCEPT
     Indication: Colorectal cancer
  3. IRINOTECAN HYDROCHLORIDE [Suspect]
     Active Substance: IRINOTECAN HYDROCHLORIDE
     Indication: Colon cancer
     Dosage: 150 MG/M2
     Dates: start: 20211221
  4. FLUOROURACIL [Suspect]
     Active Substance: FLUOROURACIL
     Indication: Colon cancer
     Dosage: 400 MG/M2
     Dates: start: 20211221
  5. FLUOROURACIL [Suspect]
     Active Substance: FLUOROURACIL
     Dosage: 4200 MG/M2
     Dates: start: 20211221
  6. FERROUS SULFATE [Concomitant]
     Active Substance: FERROUS SULFATE
     Indication: Anaemia
     Dosage: 512 MG
     Dates: start: 20220117
  7. OFLOXACIN [Concomitant]
     Active Substance: OFLOXACIN
     Indication: Prophylaxis
     Dosage: UNK
     Dates: start: 20220117, end: 20220119
  8. TRANEXAMIC ACID [Concomitant]
     Active Substance: TRANEXAMIC ACID
     Indication: Prophylaxis
     Dosage: 250 MG, Q8H
     Dates: start: 20220117, end: 20220120
  9. RAMOSETRON HYDROCHLORIDE [Concomitant]
     Active Substance: RAMOSETRON HYDROCHLORIDE
     Indication: Nausea
     Dosage: 0.1 MG
     Dates: start: 20220103
  10. METOCLOPRAMIDE [Concomitant]
     Active Substance: METOCLOPRAMIDE
     Indication: Nausea
     Dosage: 5 MG
     Dates: start: 20220103
  11. SODIUM CHLORIDE [Concomitant]
     Active Substance: SODIUM CHLORIDE
     Indication: Dehydration
     Dosage: 1000 ML, QD
     Dates: start: 20220120
  12. SODIUM CHLORIDE [Concomitant]
     Active Substance: SODIUM CHLORIDE
     Dosage: 100 ML, Q6H
     Dates: start: 20220121, end: 20220124
  13. TRAMADOL HYDROCHLORIDE [Concomitant]
     Active Substance: TRAMADOL HYDROCHLORIDE
     Indication: Pain
     Dosage: 50 MG, QD
     Dates: start: 20220120, end: 20220120
  14. PIPERACILLIN SODIUM\TAZOBACTAM SODIUM [Concomitant]
     Active Substance: PIPERACILLIN SODIUM\TAZOBACTAM SODIUM
     Indication: Pyrexia
     Dosage: 4.5 G, Q6H
     Dates: start: 20220121, end: 20220124
  15. CHLORPHENIRAMINE MALEATE [Concomitant]
     Active Substance: CHLORPHENIRAMINE MALEATE
     Indication: Transfusion
     Dosage: 4 MG
     Dates: end: 20220122
  16. OLMESARTAN MEDOXOMIL [Concomitant]
     Active Substance: OLMESARTAN MEDOXOMIL
     Indication: Hypertension
     Dosage: 20 MG, QD
  17. CEFPODOXIME PROXETIL [Concomitant]
     Active Substance: CEFPODOXIME PROXETIL
     Indication: Pyrexia
     Dosage: 100 MG, Q12H
  18. ACETAMINOPHEN [Concomitant]
     Active Substance: ACETAMINOPHEN
     Indication: Pyrexia
     Dosage: 1300 MG

REACTIONS (3)
  - Dysarthria [Recovered/Resolved]
  - Cerebrovascular accident [Not Recovered/Not Resolved]
  - Brain stem infarction [Recovered/Resolved]

NARRATIVE: CASE EVENT DATE: 20220117
